FAERS Safety Report 7997774-X (Version None)
Quarter: 2011Q4

REPORT INFORMATION
  Report Type: 
  Country: None (occurrence: None)
  Receive Date: 20111221
  Receipt Date: 20111208
  Transmission Date: 20120403
  Serious: Yes (Hospitalization, Other)
  Sender: FDA-Public Use
  Company Number: PHEH2011US008930

PATIENT
  Sex: Female

DRUGS (2)
  1. SANDOSTATIN LAR [Suspect]
     Indication: COLITIS MICROSCOPIC
  2. SANDOSTATIN LAR [Suspect]
     Indication: IMMUNODEFICIENCY

REACTIONS (3)
  - WEIGHT DECREASED [None]
  - DIARRHOEA [None]
  - MALNUTRITION [None]
